FAERS Safety Report 8819394 (Version 2)
Quarter: 2013Q2

REPORT INFORMATION
  Report Type: Spontaneous
  Country: US (occurrence: None)
  Receive Date: 20121003
  Receipt Date: 20130416
  Transmission Date: 20140414
  Serious: Yes (Life-Threatening)
  Sender: FDA-Public Use
  Company Number: A200329030

PATIENT
  Age: 4 Month
  Sex: Female

DRUGS (2)
  1. EMLA CREME [Suspect]
     Dosage: 60 GM, OT
  2. ERYTHROMYCIN [Concomitant]

REACTIONS (9)
  - Cyanosis [None]
  - Unresponsive to stimuli [None]
  - Respiratory arrest [None]
  - Grand mal convulsion [None]
  - Toxicity to various agents [None]
  - Incorrect dose administered [None]
  - No therapeutic response [None]
  - Gait disturbance [None]
  - Methaemoglobinaemia [None]
